FAERS Safety Report 5657378-0 (Version None)
Quarter: 2008Q1

REPORT INFORMATION
  Report Type: 
  Country: None (occurrence: None)
  Receive Date: 20080310
  Receipt Date: 20080225
  Transmission Date: 20080703
  Serious: Yes (Hospitalization)
  Sender: FDA-Public Use
  Company Number: PHBS2008TR02870

PATIENT
  Sex: Male

DRUGS (4)
  1. SANDOSTATIN [Suspect]
     Indication: CHYLOTHORAX
     Dosage: 1 UG/KG/HR
  2. SANDOSTATIN [Suspect]
     Dosage: 10 UG/KG/HR
  3. IMMUNOGLOBULINS [Concomitant]
     Route: 042
  4. LEVOTHYROXINE SODIUM [Concomitant]

REACTIONS (8)
  - CHEST TUBE INSERTION [None]
  - DRUG INEFFECTIVE [None]
  - ENDOTRACHEAL INTUBATION [None]
  - LUNG DISORDER [None]
  - PLEURAL EFFUSION [None]
  - PLEURODESIS [None]
  - RESPIRATORY DISTRESS [None]
  - THORACIC CAVITY DRAINAGE [None]
